FAERS Safety Report 7626152-8 (Version None)
Quarter: 2011Q3

REPORT INFORMATION
  Report Type: 
  Country: None (occurrence: None)
  Receive Date: 20110721
  Receipt Date: 20110715
  Transmission Date: 20111222
  Serious: No
  Sender: FDA-Public Use
  Company Number: US-B.I. PHARMACEUTICALS,INC./RIDGEFIELD-2011-BP-15422BP

PATIENT
  Age: 77 Year
  Sex: Female
  Weight: 55.34 kg

DRUGS (5)
  1. PRADAXA [Suspect]
     Indication: ATRIAL FIBRILLATION
     Dosage: 300 MG
     Route: 048
     Dates: start: 20110418, end: 20110502
  2. MULTI-VITAMIN [Concomitant]
  3. THYROID TAB [Concomitant]
     Dosage: 60 MG
     Route: 048
  4. DIGOXIN [Concomitant]
     Dates: start: 20080528
  5. BYSTOLIC [Concomitant]
     Dates: start: 20110617

REACTIONS (2)
  - ARTHRALGIA [None]
  - HEADACHE [None]
